FAERS Safety Report 5129478-5 (Version None)
Quarter: 2006Q4

REPORT INFORMATION
  Report Type: 
  Country: None (occurrence: None)
  Receive Date: 20061018
  Receipt Date: 20060727
  Transmission Date: 20070319
  Serious: Yes (Hospitalization, Other)
  Sender: FDA-Public Use
  Company Number: 2006UW15289

PATIENT
  Age: 53 Year
  Sex: Male

DRUGS (16)
  1. SEROQUEL [Suspect]
     Route: 048
  2. RIBAVIRIN [Concomitant]
     Dates: start: 20000901
  3. INTERFERON [Concomitant]
  4. CLONAZEPAM [Concomitant]
     Dosage: 0.5-2MG
  5. INSULIN [Concomitant]
  6. LASIX [Concomitant]
  7. POTASSIUM CHLORIDE [Concomitant]
  8. ACTOS [Concomitant]
  9. LISINOPRIL [Concomitant]
  10. TRICOR [Concomitant]
  11. YALATAN [Concomitant]
  12. ARANESP [Concomitant]
  13. NASONEX [Concomitant]
  14. VITAMIN B-12 [Concomitant]
  15. VITAMIN B6 [Concomitant]
  16. FOLIC ACID [Concomitant]

REACTIONS (3)
  - ANAEMIA [None]
  - DRUG TOXICITY [None]
  - LEUKOPENIA [None]
